FAERS Safety Report 6929748-1 (Version None)
Quarter: 2010Q3

REPORT INFORMATION
  Report Type: 
  Country: None (occurrence: None)
  Receive Date: 20100813
  Receipt Date: 20100806
  Transmission Date: 20110219
  Serious: Yes (Other)
  Sender: FDA-Public Use
  Company Number: TRP_07180_2010

PATIENT
  Sex: Female

DRUGS (4)
  1. RIBASPHERE [Suspect]
     Indication: HEPATITIS C
     Dosage: ORAL
     Route: 048
     Dates: start: 20091002
  2. PEG-INTRON [Suspect]
     Indication: HEPATITIS C
     Dosage: SUBCUTANEOUS
     Route: 058
     Dates: start: 20091002
  3. MUCINEX [Concomitant]
  4. PROCRIT [Concomitant]

REACTIONS (13)
  - BLOOD GLUCOSE INCREASED [None]
  - DISTURBANCE IN ATTENTION [None]
  - FACIAL PAIN [None]
  - HAEMORRHAGE [None]
  - HEAD INJURY [None]
  - NEUTROPENIA [None]
  - PAIN [None]
  - PURULENCE [None]
  - PYREXIA [None]
  - SKIN LACERATION [None]
  - SOMNOLENCE [None]
  - SWELLING [None]
  - WEIGHT DECREASED [None]
